FAERS Safety Report 23587142 (Version 4)
Quarter: 2024Q2

REPORT INFORMATION
  Report Type: Spontaneous
  Country: GB (occurrence: GB)
  Receive Date: 20240301
  Receipt Date: 20240501
  Transmission Date: 20240716
  Serious: Yes (Hospitalization, Other)
  Sender: FDA-Public Use
  Company Number: None

PATIENT
  Age: 72 Year
  Sex: Female
  Weight: 50 kg

DRUGS (16)
  1. AZACITIDINE [Suspect]
     Active Substance: AZACITIDINE
     Indication: Acute myeloid leukaemia
     Dosage: DAILY ON DAYS 1,2,3,4, 5, 8,9;??START DATE:26-FEB-2024
     Route: 050
  2. AZACITIDINE [Suspect]
     Active Substance: AZACITIDINE
     Dosage: LAST ADMINISTRATION DATE: 2024?DAYS 1, 2, 3, 4, 5, 8, 9 OF 28 DAY CYCLE
     Route: 058
     Dates: start: 20240108, end: 20240116
  3. AZACITIDINE [Suspect]
     Active Substance: AZACITIDINE
     Dosage: DAILY ON DAYS 1,2,3,4, 5, 8,9;
     Route: 050
     Dates: start: 20240108, end: 20240116
  4. VENETOCLAX [Suspect]
     Active Substance: VENETOCLAX
     Indication: Acute myeloid leukaemia
     Dosage: THERAPY START DATE: 26-FEB-2024
     Route: 050
  5. VENETOCLAX [Suspect]
     Active Substance: VENETOCLAX
     Dosage: THERAPY START DATE 08-JAN-2024?LAST ADMINISTRATION DATE: 2024
     Route: 050
  6. VENETOCLAX [Suspect]
     Active Substance: VENETOCLAX
     Dosage: THERAPY START DATE 08-JAN-2024
     Route: 050
     Dates: end: 20240204
  7. SULFAMETHOXAZOLE\TRIMETHOPRIM [Concomitant]
     Active Substance: SULFAMETHOXAZOLE\TRIMETHOPRIM
     Indication: Prophylaxis
     Dosage: BD, MON WED, FRIDAY;
     Route: 050
     Dates: start: 20240108
  8. AMLODIPINE [Concomitant]
     Active Substance: AMLODIPINE BESYLATE
     Indication: Product used for unknown indication
     Route: 050
     Dates: start: 20150626
  9. AMLODIPINE [Concomitant]
     Active Substance: AMLODIPINE BESYLATE
     Indication: Hypertension
     Dosage: (AMLODIPINE 10 MG, ONCE DAILY
     Route: 048
  10. ATORVASTATIN [Concomitant]
     Active Substance: ATORVASTATIN
     Indication: Prophylaxis
     Route: 050
     Dates: start: 20201130
  11. ATORVASTATIN [Concomitant]
     Active Substance: ATORVASTATIN
     Indication: Product used for unknown indication
     Dosage: 10 MG, ONCE DAILY
     Route: 065
  12. ACYCLOVIR [Concomitant]
     Active Substance: ACYCLOVIR
     Indication: Prophylaxis
     Route: 050
     Dates: start: 20240108
  13. ASPIRIN [Concomitant]
     Active Substance: ASPIRIN
     Indication: Transient ischaemic attack
     Route: 050
     Dates: start: 20060606
  14. POSACONAZOLE [Concomitant]
     Active Substance: POSACONAZOLE
     Indication: Product used for unknown indication
     Route: 050
     Dates: start: 20240112
  15. POSACONAZOLE [Concomitant]
     Active Substance: POSACONAZOLE
     Dosage: POSACONAZOLE 300 MG ORALLY, ONCE DAILY
     Route: 048
  16. ACYCLOVIR SODIUM [Concomitant]
     Active Substance: ACYCLOVIR SODIUM
     Indication: Product used for unknown indication
     Dosage: ACYCLOVIR 800 MG ORALLY, TWICE A DAY
     Route: 048

REACTIONS (17)
  - Aortic aneurysm [Unknown]
  - Cytopenia [Recovered/Resolved]
  - Pancreatitis acute [Not Recovered/Not Resolved]
  - Acute myeloid leukaemia [Unknown]
  - Pancreatitis acute [Recovered/Resolved with Sequelae]
  - Acute myeloid leukaemia [Recovered/Resolved]
  - Pancreatitis relapsing [Unknown]
  - Hepatic steatosis [Unknown]
  - Gastric volvulus [Unknown]
  - Hepatic cyst [Unknown]
  - Renal disorder [Unknown]
  - Gastric dilatation [Unknown]
  - Abdominal rigidity [Recovered/Resolved]
  - Abdominal tenderness [Recovered/Resolved]
  - Amylase increased [Recovered/Resolved]
  - Neutropenia [Recovered/Resolved]
  - Abdominal pain [Recovered/Resolved with Sequelae]

NARRATIVE: CASE EVENT DATE: 20240101
